FAERS Safety Report 7032188-0 (Version None)
Quarter: 2010Q4

REPORT INFORMATION
  Report Type: 
  Country: None (occurrence: None)
  Receive Date: 20101007
  Receipt Date: 20100201
  Transmission Date: 20110411
  Serious: Yes (Death, Life-Threatening)
  Sender: FDA-Public Use
  Company Number: CN-BRISTOL-MYERS SQUIBB COMPANY-14959704

PATIENT
  Age: 47 Year
  Sex: Male
  Weight: 58 kg

DRUGS (4)
  1. CETUXIMAB [Suspect]
     Indication: OESOPHAGEAL SQUAMOUS CELL CARCINOMA
     Dosage: 1DF=400-500MG/WK RECENT INF:25JAN10
     Route: 042
     Dates: start: 20091228, end: 20100125
  2. PACLITAXEL [Suspect]
     Indication: OESOPHAGEAL SQUAMOUS CELL CARCINOMA
     Dosage: RECENT INF:25JAN10
     Route: 042
     Dates: start: 20091228, end: 20100125
  3. CISPLATIN [Suspect]
     Indication: OESOPHAGEAL SQUAMOUS CELL CARCINOMA
     Dosage: RECENT INF:25JAN10
     Route: 042
     Dates: start: 20091228, end: 20100125
  4. RADIOTHERAPY [Suspect]
     Indication: OESOPHAGEAL SQUAMOUS CELL CARCINOMA
     Dosage: 1 DF = 25 DOSES,1.8 GY EACH TIME,45 GY IN TOTAL.
     Dates: start: 20091228, end: 20100129

REACTIONS (2)
  - DYSPNOEA [None]
  - LUNG INFECTION [None]
